FAERS Safety Report 20757924 (Version 1)
Quarter: 2022Q2

REPORT INFORMATION
  Report Type: Spontaneous
  Country: PL (occurrence: PL)
  Receive Date: 20220427
  Receipt Date: 20220427
  Transmission Date: 20220720
  Serious: Yes (Hospitalization)
  Sender: FDA-Public Use
  Company Number: PL-002147023-NVSC2022PL065311

PATIENT
  Age: 78 Year
  Sex: Male

DRUGS (14)
  1. BISOPROLOL [Suspect]
     Active Substance: BISOPROLOL
     Indication: Product used for unknown indication
     Dosage: 5 MILLIGRAM DAILY; 5 MG, QD (1-0-0),THERAPY START DATE AND END DATE : ASKU
     Route: 065
  2. FINASTERIDE [Suspect]
     Active Substance: FINASTERIDE
     Indication: Product used for unknown indication
     Dosage: 5 MILLIGRAM DAILY; 5 MG, QD (0-0-1),THERAPY START DATE AND END DATE : ASKU
     Route: 065
  3. ROSUVASTATIN [Suspect]
     Active Substance: ROSUVASTATIN
     Indication: Product used for unknown indication
     Dosage: 40 MG, QD (0-0-1),THERAPY START DATE AND END DATE : ASKU
     Route: 065
  4. TAMSULOSIN [Suspect]
     Active Substance: TAMSULOSIN
     Indication: Product used for unknown indication
     Dosage: .4 MILLIGRAM DAILY; 0.4 MG (1-0-0) THERAPY START DATE AND END DATE : ASKU
     Route: 065
  5. TELMISARTAN [Suspect]
     Active Substance: TELMISARTAN
     Indication: Product used for unknown indication
     Dosage: 40 MILLIGRAM DAILY; 40 MG, QD (1-0-0),THERAPY START DATE AND END DATE : ASKU
     Route: 065
  6. TORSEMIDE [Suspect]
     Active Substance: TORSEMIDE
     Indication: Product used for unknown indication
     Dosage: 200 MILLIGRAM DAILY; 200 MG, QD (1-0-0)THERAPY START DATE AND END DATE : ASKU
     Route: 065
  7. OMEPRAZOLE [Suspect]
     Active Substance: OMEPRAZOLE
     Indication: Product used for unknown indication
     Dosage: UNK UNK, QD (1-0-0),THERAPY START DATE AND END DATE : ASKU
     Route: 065
  8. EPLERENONE [Suspect]
     Active Substance: EPLERENONE
     Indication: Product used for unknown indication
     Dosage: .03 GRAM DAILY; 0.025 G (1-0-0)THERAPY START DATE AND END DATE : ASKU
     Route: 065
  9. ALLOPURINOL [Suspect]
     Active Substance: ALLOPURINOL
     Indication: Product used for unknown indication
     Dosage: 1 DOSAGE FORMS DAILY; 1 DOSAGE FORM, QD (1X1),THERAPY START DATE AND END DATE : ASKU
     Route: 065
  10. AMIODARONE [Suspect]
     Active Substance: AMIODARONE
     Indication: Product used for unknown indication
     Dosage: .2 GRAM DAILY; 0.2 G, QD (1-0-0),THERAPY START DATE AND END DATE : ASKU
     Route: 065
  11. HUMULIN R [Suspect]
     Active Substance: INSULIN HUMAN
     Indication: Product used for unknown indication
     Dosage: UNK,THERAPY START DATE AND END DATE : ASKU
     Route: 065
  12. DOBUTAMINE [Suspect]
     Active Substance: DOBUTAMINE HYDROCHLORIDE
     Indication: Product used for unknown indication
     Dosage: UNK,THERAPY START DATE AND END DATE : ASKU
     Route: 065
  13. APIXABAN [Suspect]
     Active Substance: APIXABAN
     Indication: Product used for unknown indication
     Dosage: 5 MILLIGRAM DAILY; 2.5 MG, BID (1-0-1),THERAPY START DATE AND END DATE : ASKU
     Route: 065
  14. WARFARIN [Suspect]
     Active Substance: WARFARIN
     Indication: Product used for unknown indication
     Dosage: UNK,THERAPY START DATE AND END DATE : ASKU
     Route: 065

REACTIONS (8)
  - C-reactive protein increased [Unknown]
  - Rales [Unknown]
  - Ventricular tachycardia [Unknown]
  - Platelet distribution width increased [Unknown]
  - Monocyte count increased [Unknown]
  - Dyspnoea exertional [Recovered/Resolved]
  - Arrhythmia [Unknown]
  - Oedema peripheral [Unknown]
